FAERS Safety Report 18720964 (Version 1)
Quarter: 2021Q1

REPORT INFORMATION
  Report Type: Spontaneous
  Country: US (occurrence: US)
  Receive Date: 20210108
  Receipt Date: 20210108
  Transmission Date: 20210419
  Serious: No
  Sender: FDA-Public Use
  Company Number: US-ASTRAZENECA-2020SF67928

PATIENT
  Age: 21702 Day
  Sex: Male
  Weight: 142.9 kg

DRUGS (4)
  1. BYDUREON BCISE [Suspect]
     Active Substance: EXENATIDE
     Indication: TYPE 2 DIABETES MELLITUS
     Route: 058
     Dates: start: 200008
  2. BYDUREON BCISE [Suspect]
     Active Substance: EXENATIDE
     Indication: TYPE 2 DIABETES MELLITUS
     Route: 058
     Dates: start: 20201204
  3. JANUVIA [Concomitant]
     Active Substance: SITAGLIPTIN PHOSPHATE
     Indication: TYPE 2 DIABETES MELLITUS
     Route: 065
  4. METAMUCIL [Concomitant]
     Active Substance: PLANTAGO SEED
     Indication: IRRITABLE BOWEL SYNDROME
     Route: 065
     Dates: start: 2020

REACTIONS (8)
  - Injection site mass [Unknown]
  - Impaired gastric emptying [Unknown]
  - Blood glucose increased [Unknown]
  - Incorrect dose administered by device [Unknown]
  - Weight decreased [Unknown]
  - Infrequent bowel movements [Unknown]
  - Glycosylated haemoglobin decreased [Unknown]
  - Wrong technique in device usage process [Unknown]

NARRATIVE: CASE EVENT DATE: 202008
